FAERS Safety Report 13228669 (Version 3)
Quarter: 2018Q4

REPORT INFORMATION
  Report Type: Spontaneous
  Country: US (occurrence: US)
  Receive Date: 20170213
  Receipt Date: 20181010
  Transmission Date: 20190204
  Serious: No
  Sender: FDA-Public Use
  Company Number: US-ROCHE-1864540

PATIENT
  Sex: Female
  Weight: 58.57 kg

DRUGS (16)
  1. BENICAR [Concomitant]
     Active Substance: OLMESARTAN MEDOXOMIL
     Route: 048
  2. LIPITOR [Concomitant]
     Active Substance: ATORVASTATIN CALCIUM
  3. KETOROLAC TROMETHAMINE. [Concomitant]
     Active Substance: KETOROLAC TROMETHAMINE
     Dosage: ONGOING: UNKNOWN
     Route: 065
     Dates: start: 20160309
  4. LUNESTA [Concomitant]
     Active Substance: ESZOPICLONE
  5. ZOFRAN [Concomitant]
     Active Substance: ONDANSETRON HYDROCHLORIDE
     Dosage: ODT?ONGOING: UNKNOWN
     Route: 048
     Dates: start: 20111115
  6. FOLIC ACID. [Concomitant]
     Active Substance: FOLIC ACID
  7. MACROBID (UNITED STATES) [Concomitant]
  8. OMEGA-3 ACIDS [Concomitant]
     Active Substance: OMEGA-3 FATTY ACIDS
  9. CINNAMON. [Concomitant]
     Active Substance: CINNAMON
     Route: 048
  10. CRANBERRY. [Concomitant]
     Active Substance: CRANBERRY
     Dosage: CONCENTRATE?ONGOING: UNKNOWN
     Route: 048
     Dates: start: 20111115
  11. LOMOTIL [Concomitant]
     Active Substance: ATROPINE SULFATE\DIPHENOXYLATE HYDROCHLORIDE
  12. AUGMENTIN [Concomitant]
     Active Substance: AMOXICILLIN\CLAVULANATE POTASSIUM
     Route: 048
     Dates: start: 20151013
  13. ALECENSA [Suspect]
     Active Substance: ALECTINIB HYDROCHLORIDE
     Indication: NON-SMALL CELL LUNG CANCER
     Dosage: 4 CAPSULES (600 MG) DAILY
     Route: 048
     Dates: start: 20160518
  14. LORAZEPAM. [Concomitant]
     Active Substance: LORAZEPAM
  15. ALECENSA [Suspect]
     Active Substance: ALECTINIB HYDROCHLORIDE
     Route: 048
     Dates: start: 20160519
  16. GLUCOSAMINE MSM COMPLEX PRODUCT NOS [Concomitant]

REACTIONS (2)
  - Constipation [Not Recovered/Not Resolved]
  - Weight increased [Recovering/Resolving]
